FAERS Safety Report 7903116-8 (Version None)
Quarter: 2011Q4

REPORT INFORMATION
  Report Type: 
  Country: None (occurrence: None)
  Receive Date: 20111109
  Receipt Date: 20111105
  Transmission Date: 20120403
  Serious: Yes (Death, Hospitalization)
  Sender: FDA-Public Use
  Company Number: BR-BRISTOL-MYERS SQUIBB COMPANY-15919426

PATIENT
  Age: 40 Year
  Sex: Male

DRUGS (4)
  1. GABAPENTIN [Concomitant]
  2. IPILIMUMAB [Suspect]
     Indication: MALIGNANT MELANOMA
     Dosage: INTERRUPTED ON 30JUN11
     Route: 042
     Dates: start: 20110630
  3. BROMAZEPAM [Concomitant]
  4. METHADONE HCL [Concomitant]

REACTIONS (3)
  - NEOPLASM MALIGNANT [None]
  - RESPIRATORY FAILURE [None]
  - HYPERCALCAEMIA [None]
